FAERS Safety Report 23229586 (Version 2)
Quarter: 2023Q4

REPORT INFORMATION
  Report Type: Spontaneous
  Country: US (occurrence: US)
  Receive Date: 20231127
  Receipt Date: 20231221
  Transmission Date: 20240110
  Serious: Yes (Hospitalization, Other)
  Sender: FDA-Public Use
  Company Number: US-BRISTOL-MYERS SQUIBB COMPANY-2023-168143

PATIENT
  Age: 82 Year
  Sex: Female
  Weight: 90 kg

DRUGS (32)
  1. REVLIMID [Suspect]
     Active Substance: LENALIDOMIDE
     Indication: Plasma cell myeloma
     Route: 048
     Dates: start: 20231104, end: 20231120
  2. ELIQUIS [Suspect]
     Active Substance: APIXABAN
     Indication: Atrial flutter
     Route: 048
     Dates: start: 20190319, end: 20230320
  3. ELIQUIS [Suspect]
     Active Substance: APIXABAN
     Route: 048
     Dates: start: 20231127
  4. VIACTIV [CALCIUM;COLECALCIFEROL] [Concomitant]
     Indication: Product used for unknown indication
     Dosage: VIACTIVE CHEWABLE CALCIUM WITH VITAMIN D
     Route: 048
  5. ZINC [Concomitant]
     Active Substance: PYRITHIONE ZINC\ZINC\ZINC CHLORIDE
     Indication: Product used for unknown indication
  6. ERGOCALCIFEROL [Concomitant]
     Active Substance: ERGOCALCIFEROL
     Indication: Product used for unknown indication
  7. CHOLESTYRAMINE LIGHT [Concomitant]
     Active Substance: CHOLESTYRAMINE
     Indication: Product used for unknown indication
     Dosage: ADD AT LEAST 2-3 OUNCES OF WATER OR BEVERAGE OF CHOICE AND STIR.
     Route: 048
  8. CHONDROITIN SULFATE (BOVINE)\GLUCOSAMINE HYDROCHLORIDE [Concomitant]
     Active Substance: CHONDROITIN SULFATE (BOVINE)\GLUCOSAMINE HYDROCHLORIDE
     Indication: Product used for unknown indication
     Dosage: GLUCOSAMINE CHONDROITIN 250/100: 2 TABS QD?250-200 MG
     Route: 048
  9. SYNTHROID [Concomitant]
     Active Substance: LEVOTHYROXINE SODIUM
     Indication: Product used for unknown indication
     Dosage: EVERY MORNING BEFORE BREAKFAST
     Route: 048
  10. LISINOPRIL [Concomitant]
     Active Substance: LISINOPRIL
     Indication: Product used for unknown indication
     Dosage: TAKE 0.5 TABLETS BY MOUTH ONE TIME A DAY
     Route: 048
  11. MELATONIN [Concomitant]
     Active Substance: MELATONIN
     Indication: Product used for unknown indication
     Dosage: MOUTH AT BEDTIME
     Route: 048
  12. METOPROLOL SUCCINATE [Concomitant]
     Active Substance: METOPROLOL SUCCINATE
     Indication: Product used for unknown indication
     Dosage: EXTENDED-RELEASE TABLET
     Route: 048
  13. MONTELUKAST [Concomitant]
     Active Substance: MONTELUKAST SODIUM
     Indication: Product used for unknown indication
     Dosage: MONTELUKAST 10 MG QPM EVERY EVENING
     Route: 048
  14. MVI [ASCORBIC ACID;DEXPANTHENOL;ERGOCALCIFEROL;NICOTINAMIDE;PYRIDOXINE [Concomitant]
     Indication: Product used for unknown indication
     Route: 048
  15. OMEGA-3 FATTY ACIDS [Concomitant]
     Active Substance: OMEGA-3 FATTY ACIDS
     Indication: Product used for unknown indication
     Dosage: OMEGA 3 FATTY ACIDS (VITE LITE OMEGE-3 TG) 800MG- 2 CAPSULES DAILY AT NOON
     Route: 048
  16. OMEPRAZOLE [Concomitant]
     Active Substance: OMEPRAZOLE
     Indication: Product used for unknown indication
     Route: 048
  17. PREDNISONE [Concomitant]
     Active Substance: PREDNISONE
     Indication: Product used for unknown indication
     Route: 048
     Dates: start: 20220412
  18. BACTRIM [Concomitant]
     Active Substance: SULFAMETHOXAZOLE\TRIMETHOPRIM
     Indication: Product used for unknown indication
     Dosage: BACTRIM 800/160 MG ON MONDAY, WEDNESDAY AND FRIDAY
     Route: 048
     Dates: start: 20230825
  19. TOLTERODINE [Concomitant]
     Active Substance: TOLTERODINE
     Indication: Product used for unknown indication
     Dosage: SWALLOW WHOLE; DO NOT CRUSH, CHEW, OR OPEN
     Route: 048
  20. VALACYCLOVIR [Concomitant]
     Active Substance: VALACYCLOVIR HYDROCHLORIDE
     Indication: Product used for unknown indication
     Route: 048
     Dates: start: 20231109
  21. VENTOLIN HFA [Concomitant]
     Active Substance: ALBUTEROL SULFATE
     Indication: Dyspnoea
     Dosage: INHALE 2 PUFFS INTO THE LUNGS EVERY FOUR HOURS, PRN - INHATATION
     Route: 055
  22. VENTOLIN HFA [Concomitant]
     Active Substance: ALBUTEROL SULFATE
     Indication: Wheezing
  23. VENTOLIN HFA [Concomitant]
     Active Substance: ALBUTEROL SULFATE
     Indication: Cough
  24. ACCUNEB [Concomitant]
     Active Substance: ALBUTEROL SULFATE
     Indication: Dyspnoea
     Dosage: 1.25 MG/3ML NEBULIZER
     Route: 055
  25. ACCUNEB [Concomitant]
     Active Substance: ALBUTEROL SULFATE
     Indication: Wheezing
  26. ZITHROMAX [Concomitant]
     Active Substance: AZITHROMYCIN DIHYDRATE
     Indication: Oral infection
     Dosage: DO NOT TAKE SIMULTANEOUSLY WITH ALUMINUM- OR MAGNESIUM- ?CONTAINING ANTACIDS.  TAKE 1 TAB 30-60 MIN
     Route: 048
  27. VITAMIN D3 [Concomitant]
     Active Substance: CHOLECALCIFEROL
     Indication: Product used for unknown indication
     Route: 048
  28. BENADRYL [Concomitant]
     Active Substance: DIPHENHYDRAMINE HYDROCHLORIDE
     Indication: Pruritus
     Route: 048
  29. LOMOTIL [Concomitant]
     Active Substance: ATROPINE SULFATE\DIPHENOXYLATE HYDROCHLORIDE
     Indication: Diarrhoea
     Dosage: 2.5-0.025 MG
     Route: 048
  30. FERROUS SULFATE [Concomitant]
     Active Substance: FERROUS SULFATE
     Indication: Diarrhoea
     Dosage: EC 325 (65 FE) MG  TAKE 1 TABLET BY MOUTH EVERY 43 HOURS. TAKE WITH FOOD; DO NOT CRUSH
     Route: 048
  31. NIZORAL [Concomitant]
     Active Substance: KETOCONAZOLE
     Indication: Infection
     Dosage: GLUCOSAMINE CHONDROITIN 250/100: 2 TABS QD?250-200 MG
     Route: 061
  32. PANTOPRAZOLE [Concomitant]
     Active Substance: PANTOPRAZOLE
     Indication: Product used for unknown indication
     Dosage: DON^T CRUSH
     Route: 048
     Dates: start: 20231123

REACTIONS (3)
  - Upper gastrointestinal haemorrhage [Recovered/Resolved]
  - Thrombocytopenia [Unknown]
  - Plasma cell myeloma recurrent [Unknown]

NARRATIVE: CASE EVENT DATE: 20231116
